FAERS Safety Report 14126171 (Version 6)
Quarter: 2018Q2

REPORT INFORMATION
  Report Type: Report from Study
  Country: US (occurrence: US)
  Receive Date: 20171025
  Receipt Date: 20180430
  Transmission Date: 20180711
  Serious: Yes (Death, Hospitalization, Other)
  Sender: FDA-Public Use
  Company Number: US-PFIZER INC-2017423821

PATIENT
  Age: 71 Year
  Sex: Female

DRUGS (4)
  1. IBRANCE [Suspect]
     Active Substance: PALBOCICLIB
     Dosage: 125 MG, DAILY
     Route: 048
     Dates: end: 201803
  2. FASLODEX [Concomitant]
     Active Substance: FULVESTRANT
     Indication: BREAST CANCER METASTATIC
     Dosage: 500 MG, UNK
     Dates: start: 20170927
  3. IBRANCE [Suspect]
     Active Substance: PALBOCICLIB
     Dosage: 125 MG, DAILY
     Route: 048
     Dates: start: 20170927, end: 201804
  4. IBRANCE [Suspect]
     Active Substance: PALBOCICLIB
     Indication: BREAST CANCER METASTATIC
     Dosage: 125 MG, CYCLIC (DAILY, DAYS1-21 OF A 28 DAY)
     Route: 048
     Dates: start: 20170927, end: 201711

REACTIONS (14)
  - Cardiac failure [Unknown]
  - Musculoskeletal stiffness [Unknown]
  - Haemoglobin decreased [Not Recovered/Not Resolved]
  - Pain [Unknown]
  - Intestinal obstruction [Unknown]
  - Pain in extremity [Unknown]
  - Decubitus ulcer [Unknown]
  - Rash [Unknown]
  - Diarrhoea [Unknown]
  - Renal failure [Fatal]
  - Peripheral swelling [Recovered/Resolved]
  - Vomiting [Unknown]
  - Condition aggravated [Not Recovered/Not Resolved]
  - Fatigue [Not Recovered/Not Resolved]

NARRATIVE: CASE EVENT DATE: 2017
